FAERS Safety Report 4996186-0 (Version None)
Quarter: 2006Q2

REPORT INFORMATION
  Report Type: 
  Country: None (occurrence: None)
  Receive Date: 20060504
  Receipt Date: 20060427
  Transmission Date: 20061013
  Serious: Yes (Hospitalization)
  Sender: FDA-Public Use
  Company Number: 2006037533

PATIENT
  Sex: Female

DRUGS (1)
  1. ZIPRASIDONE HCL [Suspect]
     Indication: SCHIZOPHRENIA
     Dosage: ORAL
     Route: 048

REACTIONS (4)
  - DELIRIUM [None]
  - HALLUCINATION [None]
  - SPINAL FRACTURE [None]
  - SUICIDE ATTEMPT [None]
